FAERS Safety Report 14368263 (Version 2)
Quarter: 2018Q1

REPORT INFORMATION
  Report Type: Report from Study
  Country: US (occurrence: US)
  Receive Date: 20180109
  Receipt Date: 20180205
  Transmission Date: 20180509
  Serious: Yes (Other)
  Sender: FDA-Public Use
  Company Number: US-PFIZER INC-2017332601

PATIENT
  Age: 54 Year
  Sex: Female

DRUGS (1)
  1. IBRANCE [Suspect]
     Active Substance: PALBOCICLIB
     Indication: BREAST CANCER FEMALE
     Dosage: 125 MG, CYCLIC (DAILY/ 3 WEEKS ON, 1 WEEK OFF)
     Route: 048
     Dates: start: 20170726

REACTIONS (10)
  - Rhinorrhoea [Recovering/Resolving]
  - Pyrexia [Recovering/Resolving]
  - Cough [Recovering/Resolving]
  - Headache [Unknown]
  - White blood cell count decreased [Unknown]
  - Alopecia [Unknown]
  - Somnolence [Recovered/Resolved]
  - Nasal congestion [Recovering/Resolving]
  - Flatulence [Unknown]
  - Dental caries [Unknown]

NARRATIVE: CASE EVENT DATE: 2017
